FAERS Safety Report 7478478-9 (Version None)
Quarter: 2011Q2

REPORT INFORMATION
  Report Type: 
  Country: None (occurrence: None)
  Receive Date: 20110513
  Receipt Date: 20070209
  Transmission Date: 20111010
  Serious: Yes (Other)
  Sender: FDA-Public Use
  Company Number: US-PFIZER INC-2007017246

PATIENT
  Sex: Male

DRUGS (1)
  1. AZULFIDINE [Suspect]
     Dosage: 1 GRAM DAILY

REACTIONS (1)
  - DERMATITIS ALLERGIC [None]
